FAERS Safety Report 6162969-7 (Version None)
Quarter: 2009Q2

REPORT INFORMATION
  Report Type: 
  Country: None (occurrence: None)
  Receive Date: 20090420
  Receipt Date: 20090407
  Transmission Date: 20091009
  Serious: Yes (Other)
  Sender: FDA-Public Use
  Company Number: LIP09005

PATIENT
  Age: 48 Year
  Sex: Male

DRUGS (4)
  1. LIPOFEN [Suspect]
     Indication: DYSLIPIDAEMIA
     Dosage: 150 MG DAILY, PO
     Route: 048
     Dates: start: 20081101, end: 20090301
  2. LEXAPRO [Concomitant]
  3. ALLEGRA [Concomitant]
  4. FISH OIL CAPSULES [Concomitant]

REACTIONS (5)
  - ERYTHEMA MULTIFORME [None]
  - FUNGAL INFECTION [None]
  - GRANULOMA ANNULARE [None]
  - PITYRIASIS ROSEA [None]
  - ROCKY MOUNTAIN SPOTTED FEVER [None]
